FAERS Safety Report 4282329-3 (Version None)
Quarter: 2004Q1

REPORT INFORMATION
  Report Type: 
  Country: None (occurrence: None)
  Receive Date: 20040112
  Receipt Date: 20031010
  Transmission Date: 20041129
  Serious: Yes (Hospitalization)
  Sender: FDA-Public Use
  Company Number: 349170

PATIENT
  Age: 51 Year
  Sex: Male
  Weight: 69.4 kg

DRUGS (2)
  1. FUZEON [Suspect]
     Indication: HIV INFECTION
     Dosage: 90 MG/ML 2 PER DAY SUBCUTANEOUS
     Route: 058
     Dates: start: 20030918, end: 20031028
  2. DIFLUCAN [Concomitant]

REACTIONS (13)
  - CONFUSIONAL STATE [None]
  - DEMENTIA [None]
  - ERYTHEMA [None]
  - INJECTION SITE NODULE [None]
  - INJECTION SITE PAIN [None]
  - INJECTION SITE REACTION [None]
  - LETHARGY [None]
  - MEDICATION ERROR [None]
  - MENINGITIS CRYPTOCOCCAL [None]
  - NAUSEA [None]
  - NO ADVERSE EFFECT [None]
  - SKIN DISCOLOURATION [None]
  - VOMITING [None]
